FAERS Safety Report 4865450-8 (Version None)
Quarter: 2005Q4

REPORT INFORMATION
  Report Type: 
  Country: None (occurrence: None)
  Receive Date: 20051219
  Receipt Date: 20051203
  Transmission Date: 20060501
  Serious: Yes (Death)
  Sender: FDA-Public Use
  Company Number: MPS1-10473

PATIENT
  Age: 30 Year
  Sex: Male

DRUGS (1)
  1. ALDURAZYME [Suspect]
     Indication: MUCOPOLYSACCHARIDOSIS I

REACTIONS (6)
  - ATRIOVENTRICULAR BLOCK [None]
  - CARDIAC DISORDER [None]
  - CARDIAC PSEUDOANEURYSM [None]
  - CARDIOMYOPATHY [None]
  - INTRACARDIAC THROMBUS [None]
  - VENOUS THROMBOSIS [None]
